FAERS Safety Report 9427023 (Version 1)
Quarter: 2013Q3

REPORT INFORMATION
  Report Type: Spontaneous
  Country: US (occurrence: US)
  Receive Date: 20130730
  Receipt Date: 20130730
  Transmission Date: 20140515
  Serious: No
  Sender: FDA-Public Use
  Company Number: US-ABBOTT-12P-163-0995015-00

PATIENT
  Sex: Male
  Weight: 74.91 kg

DRUGS (5)
  1. NIASPAN (COATED) [Suspect]
     Indication: BLOOD CHOLESTEROL INCREASED
     Dates: start: 201110
  2. GLUCOPHAGE [Concomitant]
     Indication: DIABETES MELLITUS
  3. CRESTOR [Concomitant]
     Indication: BLOOD CHOLESTEROL INCREASED
  4. JENUVIA [Concomitant]
     Indication: DIABETES MELLITUS
  5. ASPIRIN [Concomitant]
     Indication: CARDIOVASCULAR EVENT PROPHYLAXIS

REACTIONS (1)
  - Hot flush [Not Recovered/Not Resolved]
